FAERS Safety Report 4702663-X (Version None)
Quarter: 2005Q2

REPORT INFORMATION
  Report Type: 
  Country: None (occurrence: None)
  Receive Date: 20050629
  Receipt Date: 20041019
  Transmission Date: 20051028
  Serious: No
  Sender: FDA-Public Use
  Company Number: US-GLAXOSMITHKLINE-A0530372A

PATIENT
  Age: 41 Year
  Sex: Female

DRUGS (2)
  1. ZYBAN [Suspect]
     Dosage: 1TAB PER DAY
     Route: 048
     Dates: start: 20041015
  2. LEVOXYL [Concomitant]

REACTIONS (2)
  - AGITATION [None]
  - INSOMNIA [None]
